FAERS Safety Report 9611496 (Version 3)
Quarter: 2015Q2

REPORT INFORMATION
  Report Type: Other
  Country: IT (occurrence: IT)
  Receive Date: 20131010
  Receipt Date: 20150428
  Transmission Date: 20150821
  Serious: Yes (Hospitalization, Disabling, Other)
  Sender: FDA-Public Use
  Company Number: IT-ACTELION-A-CH2010-37323

PATIENT
  Age: 23 Month
  Sex: Male
  Weight: 11.9 kg

DRUGS (5)
  1. ZAVESCA [Suspect]
     Active Substance: MIGLUSTAT
     Indication: NIEMANN-PICK DISEASE
     Dosage: 50 MG, BID
     Route: 048
     Dates: start: 20100602, end: 20100612
  2. ZAVESCA [Suspect]
     Active Substance: MIGLUSTAT
     Dosage: 50 MG, OD
     Route: 048
  3. ACETYLSALICYLIC ACID [Concomitant]
     Active Substance: ASPIRIN
     Indication: PLATELET COUNT INCREASED
     Dosage: UNK
     Dates: start: 20100426
  4. ZAVESCA [Suspect]
     Active Substance: MIGLUSTAT
     Dosage: 25 MG, OD
     Route: 048
     Dates: start: 20100622
  5. ZAVESCA [Suspect]
     Active Substance: MIGLUSTAT
     Dosage: 30 MG, BID
     Route: 048

REACTIONS (7)
  - Ataxia [Recovered/Resolved with Sequelae]
  - Disease progression [Recovered/Resolved with Sequelae]
  - Tremor [Recovered/Resolved with Sequelae]
  - Asthenia [Not Recovered/Not Resolved]
  - Niemann-Pick disease [Recovered/Resolved with Sequelae]
  - Hypotonia [Recovered/Resolved with Sequelae]
  - Abdominal distension [Not Recovered/Not Resolved]

NARRATIVE: CASE EVENT DATE: 20100602
